FAERS Safety Report 5882732-1 (Version None)
Quarter: 2008Q3

REPORT INFORMATION
  Report Type: 
  Country: None (occurrence: None)
  Receive Date: 20080913
  Receipt Date: 20080814
  Transmission Date: 20090109
  Serious: No
  Sender: FDA-Public Use
  Company Number: US-ABBOTT-08P-163-0470911-00

PATIENT
  Sex: Female

DRUGS (4)
  1. HUMIRA [Suspect]
     Indication: PSORIASIS
     Route: 058
     Dates: start: 20080725, end: 20080811
  2. NSAID'S [Concomitant]
     Indication: DRUG USE FOR UNKNOWN INDICATION
  3. COX2 INHIBITORS [Concomitant]
     Indication: DRUG USE FOR UNKNOWN INDICATION
  4. ANALGESICS [Concomitant]
     Indication: DRUG USE FOR UNKNOWN INDICATION

REACTIONS (5)
  - BLISTER [None]
  - BURNING SENSATION [None]
  - INFLUENZA LIKE ILLNESS [None]
  - OROPHARYNGEAL PAIN [None]
  - RASH PAPULAR [None]
